FAERS Safety Report 11429288 (Version 1)
Quarter: 2015Q3

REPORT INFORMATION
  Report Type: Spontaneous
  Country: US (occurrence: US)
  Receive Date: 20150828
  Receipt Date: 20150828
  Transmission Date: 20151125
  Serious: No
  Sender: FDA-Public Use
  Company Number: US-ROCHE-1195039

PATIENT
  Age: 46 Year
  Sex: Male

DRUGS (3)
  1. PEGASYS [Suspect]
     Active Substance: PEGINTERFERON ALFA-2A
     Indication: CHRONIC HEPATITIS C
     Route: 058
     Dates: start: 20120523
  2. TELAPREVIR [Suspect]
     Active Substance: TELAPREVIR
     Indication: CHRONIC HEPATITIS C
     Route: 065
     Dates: start: 20120523
  3. RIBAVIRIN. [Suspect]
     Active Substance: RIBAVIRIN
     Indication: CHRONIC HEPATITIS C
     Dosage: DIVIDED DOSES 600 / 600
     Route: 065
     Dates: start: 20120523

REACTIONS (7)
  - Influenza like illness [Unknown]
  - Dry skin [Recovering/Resolving]
  - Anaemia [Unknown]
  - Pruritus [Unknown]
  - Irritability [Unknown]
  - Platelet count decreased [Unknown]
  - Dandruff [Recovering/Resolving]

NARRATIVE: CASE EVENT DATE: 201207
